FAERS Safety Report 23890553 (Version 1)
Quarter: 2024Q2

REPORT INFORMATION
  Report Type: Spontaneous
  Country: CN (occurrence: CN)
  Receive Date: 20240523
  Receipt Date: 20240523
  Transmission Date: 20240716
  Serious: Yes (Life-Threatening, Hospitalization, Other)
  Sender: FDA-Public Use
  Company Number: CN-ELI_LILLY_AND_COMPANY-CN202405012993

PATIENT
  Age: 54 Year
  Sex: Female
  Weight: 45 kg

DRUGS (3)
  1. HUMULIN 70/30 [Suspect]
     Active Substance: INSULIN HUMAN
     Indication: Diabetes mellitus
     Dosage: 13-14 INTERNATIONAL UNIT, EACH MORNING
     Route: 058
     Dates: start: 20240223, end: 20240223
  2. HUMULIN 70/30 [Suspect]
     Active Substance: INSULIN HUMAN
     Dosage: 20 INTERNATIONAL UNIT, EACH EVENING
     Route: 058
     Dates: start: 20240223, end: 20240223
  3. ALPRAZOLAM [Suspect]
     Active Substance: ALPRAZOLAM
     Indication: Sleep disorder
     Dosage: 8 MG, DAILY
     Route: 048
     Dates: start: 20240223, end: 20240223

REACTIONS (4)
  - Hypoglycaemia [Recovering/Resolving]
  - Altered state of consciousness [Recovering/Resolving]
  - Hypokalaemia [Recovering/Resolving]
  - Carotid artery stenosis [Unknown]

NARRATIVE: CASE EVENT DATE: 20240223
